FAERS Safety Report 9166925 (Version 5)
Quarter: 2014Q1

REPORT INFORMATION
  Report Type: Spontaneous
  Country: CA (occurrence: CA)
  Receive Date: 20130318
  Receipt Date: 20140307
  Transmission Date: 20141002
  Serious: Yes (Other)
  Sender: FDA-Public Use
  Company Number: CA-AMGEN-CANSP2013016726

PATIENT
  Age: 55 Year
  Sex: Female

DRUGS (11)
  1. ENBREL [Suspect]
     Indication: PSORIATIC ARTHROPATHY
     Dosage: 50 MG, UNK
     Route: 065
     Dates: start: 20120630
  2. ENBREL [Suspect]
     Indication: RHEUMATOID ARTHRITIS
  3. ENBREL [Suspect]
     Indication: ARTHRITIS
  4. METHOTREXATE [Concomitant]
     Dosage: UNK
  5. CRESTOR [Concomitant]
     Dosage: UNK
  6. SYMBICORT [Concomitant]
     Dosage: TWO INHALATIONS BID
  7. EFFEXOR [Concomitant]
     Dosage: UNK
  8. NEXIUM                             /01479302/ [Concomitant]
     Dosage: UNK
  9. AZATHIOPRINE [Concomitant]
     Dosage: 50 MG, 3 TABS PER DAY
  10. CORTISONE [Concomitant]
     Dosage: UNK
  11. SULFATRIM                          /00086101/ [Concomitant]
     Dosage: 800 MG, 3 DAYS PER WEEK

REACTIONS (8)
  - Pulmonary mass [Not Recovered/Not Resolved]
  - Pulmonary fibrosis [Not Recovered/Not Resolved]
  - Pneumonia [Unknown]
  - Lung infiltration [Unknown]
  - Cough [Unknown]
  - Dyspnoea [Recovering/Resolving]
  - Lymphocytic infiltration [Unknown]
  - Injection site reaction [Not Recovered/Not Resolved]
